FAERS Safety Report 25389589 (Version 1)
Quarter: 2025Q2

REPORT INFORMATION
  Report Type: Report from Study
  Country: IN (occurrence: IN)
  Receive Date: 20250603
  Receipt Date: 20250603
  Transmission Date: 20250717
  Serious: Yes (Other)
  Sender: MYLAN
  Company Number: IN-MYLANLABS-2025M1046743

PATIENT
  Age: 12 Year
  Sex: Male

DRUGS (48)
  1. METHOTREXATE [Suspect]
     Active Substance: METHOTREXATE
     Indication: B precursor type acute leukaemia
  2. METHOTREXATE [Suspect]
     Active Substance: METHOTREXATE
     Route: 065
  3. METHOTREXATE [Suspect]
     Active Substance: METHOTREXATE
     Route: 065
  4. METHOTREXATE [Suspect]
     Active Substance: METHOTREXATE
  5. FLUDARABINE [Suspect]
     Active Substance: FLUDARABINE PHOSPHATE
     Indication: Precursor B-lymphoblastic lymphoma refractory
     Dosage: 30 MILLIGRAM/SQ. METER, QD (ADMINISTERED UNDER FLAG REGIMEN; FROM DAYS 1 TO 5: IV INFUSION ADMINISTERED FOR 30 MINUTES)
  6. FLUDARABINE [Suspect]
     Active Substance: FLUDARABINE PHOSPHATE
     Dosage: 30 MILLIGRAM/SQ. METER, QD (ADMINISTERED UNDER FLAG REGIMEN; FROM DAYS 1 TO 5: IV INFUSION ADMINISTERED FOR 30 MINUTES)
     Route: 042
  7. FLUDARABINE [Suspect]
     Active Substance: FLUDARABINE PHOSPHATE
     Dosage: 30 MILLIGRAM/SQ. METER, QD (ADMINISTERED UNDER FLAG REGIMEN; FROM DAYS 1 TO 5: IV INFUSION ADMINISTERED FOR 30 MINUTES)
     Route: 042
  8. FLUDARABINE [Suspect]
     Active Substance: FLUDARABINE PHOSPHATE
     Dosage: 30 MILLIGRAM/SQ. METER, QD (ADMINISTERED UNDER FLAG REGIMEN; FROM DAYS 1 TO 5: IV INFUSION ADMINISTERED FOR 30 MINUTES)
  9. CYTARABINE [Suspect]
     Active Substance: CYTARABINE
     Indication: B precursor type acute leukaemia
  10. CYTARABINE [Suspect]
     Active Substance: CYTARABINE
     Indication: Precursor B-lymphoblastic lymphoma refractory
  11. CYTARABINE [Suspect]
     Active Substance: CYTARABINE
     Route: 065
  12. CYTARABINE [Suspect]
     Active Substance: CYTARABINE
     Route: 065
  13. CYTARABINE [Suspect]
     Active Substance: CYTARABINE
     Dosage: UNK, QD (ADMINISTERED UNDER FLAG REGIMEN AT 2 G/M2 DAILY FOR FOUR HOURS)
  14. CYTARABINE [Suspect]
     Active Substance: CYTARABINE
     Dosage: UNK, QD (ADMINISTERED UNDER FLAG REGIMEN AT 2 G/M2 DAILY FOR FOUR HOURS)
  15. CYTARABINE [Suspect]
     Active Substance: CYTARABINE
     Dosage: UNK, QD (ADMINISTERED UNDER FLAG REGIMEN AT 2 G/M2 DAILY FOR FOUR HOURS)
     Route: 065
  16. CYTARABINE [Suspect]
     Active Substance: CYTARABINE
     Dosage: UNK, QD (ADMINISTERED UNDER FLAG REGIMEN AT 2 G/M2 DAILY FOR FOUR HOURS)
     Route: 065
  17. BORTEZOMIB [Suspect]
     Active Substance: BORTEZOMIB
     Indication: Precursor B-lymphoblastic lymphoma refractory
  18. BORTEZOMIB [Suspect]
     Active Substance: BORTEZOMIB
     Route: 058
  19. BORTEZOMIB [Suspect]
     Active Substance: BORTEZOMIB
     Route: 058
  20. BORTEZOMIB [Suspect]
     Active Substance: BORTEZOMIB
  21. DAUNORUBICIN [Suspect]
     Active Substance: DAUNORUBICIN
     Indication: B precursor type acute leukaemia
  22. DAUNORUBICIN [Suspect]
     Active Substance: DAUNORUBICIN
     Route: 065
  23. DAUNORUBICIN [Suspect]
     Active Substance: DAUNORUBICIN
     Route: 065
  24. DAUNORUBICIN [Suspect]
     Active Substance: DAUNORUBICIN
  25. VINCRISTINE [Suspect]
     Active Substance: VINCRISTINE
     Indication: B precursor type acute leukaemia
  26. VINCRISTINE [Suspect]
     Active Substance: VINCRISTINE
     Route: 065
  27. VINCRISTINE [Suspect]
     Active Substance: VINCRISTINE
     Route: 065
  28. VINCRISTINE [Suspect]
     Active Substance: VINCRISTINE
  29. ASPARAGINASE [Suspect]
     Active Substance: ASPARAGINASE
     Indication: B precursor type acute leukaemia
  30. ASPARAGINASE [Suspect]
     Active Substance: ASPARAGINASE
     Route: 065
  31. ASPARAGINASE [Suspect]
     Active Substance: ASPARAGINASE
     Route: 065
  32. ASPARAGINASE [Suspect]
     Active Substance: ASPARAGINASE
  33. PREDNISONE [Suspect]
     Active Substance: PREDNISONE
     Indication: B precursor type acute leukaemia
  34. PREDNISONE [Suspect]
     Active Substance: PREDNISONE
     Route: 065
  35. PREDNISONE [Suspect]
     Active Substance: PREDNISONE
     Route: 065
  36. PREDNISONE [Suspect]
     Active Substance: PREDNISONE
  37. CYCLOPHOSPHAMIDE [Suspect]
     Active Substance: CYCLOPHOSPHAMIDE
     Indication: B precursor type acute leukaemia
  38. CYCLOPHOSPHAMIDE [Suspect]
     Active Substance: CYCLOPHOSPHAMIDE
     Route: 065
  39. CYCLOPHOSPHAMIDE [Suspect]
     Active Substance: CYCLOPHOSPHAMIDE
     Route: 065
  40. CYCLOPHOSPHAMIDE [Suspect]
     Active Substance: CYCLOPHOSPHAMIDE
  41. MERCAPTOPURINE [Suspect]
     Active Substance: MERCAPTOPURINE
     Indication: B precursor type acute leukaemia
  42. MERCAPTOPURINE [Suspect]
     Active Substance: MERCAPTOPURINE
     Route: 065
  43. MERCAPTOPURINE [Suspect]
     Active Substance: MERCAPTOPURINE
     Route: 065
  44. MERCAPTOPURINE [Suspect]
     Active Substance: MERCAPTOPURINE
  45. PREDNISOLONE [Suspect]
     Active Substance: PREDNISOLONE
     Indication: B precursor type acute leukaemia
  46. PREDNISOLONE [Suspect]
     Active Substance: PREDNISOLONE
     Route: 065
  47. PREDNISOLONE [Suspect]
     Active Substance: PREDNISOLONE
     Route: 065
  48. PREDNISOLONE [Suspect]
     Active Substance: PREDNISOLONE

REACTIONS (4)
  - Febrile neutropenia [Recovered/Resolved]
  - Drug ineffective [Unknown]
  - Klebsiella sepsis [Unknown]
  - Off label use [Unknown]
